FAERS Safety Report 16208350 (Version 2)
Quarter: 2019Q2

REPORT INFORMATION
  Report Type: Spontaneous
  Country: BR (occurrence: BR)
  Receive Date: 20190417
  Receipt Date: 20190424
  Transmission Date: 20190711
  Serious: No
  Sender: FDA-Public Use
  Company Number: BR-PFIZER INC-2019157799

PATIENT
  Age: 47 Year
  Sex: Female
  Weight: 69.2 kg

DRUGS (2)
  1. DEPO-PROVERA [Suspect]
     Active Substance: MEDROXYPROGESTERONE ACETATE
     Indication: OVARIAN DISORDER
  2. DEPO-PROVERA [Suspect]
     Active Substance: MEDROXYPROGESTERONE ACETATE
     Indication: MENSTRUAL DISORDER
     Dosage: 150 MG, EVERY 3 MONTHS
     Dates: start: 201807

REACTIONS (3)
  - Stress [Not Recovered/Not Resolved]
  - Product use in unapproved indication [Unknown]
  - Blood glucose abnormal [Unknown]
